FAERS Safety Report 10153399 (Version 1)
Quarter: 2014Q2

REPORT INFORMATION
  Report Type: Spontaneous
  Country: US (occurrence: US)
  Receive Date: 20140505
  Receipt Date: 20140505
  Transmission Date: 20141212
  Serious: No
  Sender: FDA-Public Use
  Company Number: US-ASTRAZENECA-2013SE71789

PATIENT
  Age: 36 Year
  Sex: Female
  Weight: 77.1 kg

DRUGS (4)
  1. OMEPRAZOLE [Suspect]
     Indication: GASTROOESOPHAGEAL REFLUX DISEASE
     Route: 048
     Dates: start: 2011
  2. MVI [Concomitant]
     Indication: SUPPLEMENTATION THERAPY
  3. B12 [Concomitant]
     Indication: SUPPLEMENTATION THERAPY
  4. EXCEDRIN OTC [Concomitant]
     Indication: HEADACHE

REACTIONS (3)
  - Gastrooesophageal reflux disease [Not Recovered/Not Resolved]
  - Headache [Not Recovered/Not Resolved]
  - Drug ineffective [Not Recovered/Not Resolved]
